FAERS Safety Report 13090234 (Version 3)
Quarter: 2017Q1

REPORT INFORMATION
  Report Type: Spontaneous
  Country: US (occurrence: US)
  Receive Date: 20170105
  Receipt Date: 20170207
  Transmission Date: 20170428
  Serious: Yes (Other)
  Sender: FDA-Public Use
  Company Number: US-PFIZER INC-2016605763

PATIENT
  Sex: Male
  Weight: 4 kg

DRUGS (2)
  1. CLINDAMYCIN PHOSPHATE. [Suspect]
     Active Substance: CLINDAMYCIN PHOSPHATE
     Indication: UTERINE INFECTION
     Dosage: 600 MG, 4X/DAY (EVERY SIX HOURS))
     Route: 063
  2. GENTAMICIN SULFATE. [Suspect]
     Active Substance: GENTAMICIN SULFATE
     Indication: UTERINE INFECTION
     Dosage: 80 MG, 3X/DAY (EVERY 8 HRS)
     Route: 063

REACTIONS (2)
  - Exposure during breast feeding [Recovered/Resolved]
  - Haematochezia [Recovered/Resolved]
